FAERS Safety Report 8132496-6 (Version None)
Quarter: 2012Q1

REPORT INFORMATION
  Report Type: 
  Country: None (occurrence: None)
  Receive Date: 20120213
  Receipt Date: 20120202
  Transmission Date: 20120608
  Serious: Yes (Hospitalization, Other)
  Sender: FDA-Public Use
  Company Number: US-BRISTOL-MYERS SQUIBB COMPANY-16380594

PATIENT
  Sex: Female

DRUGS (9)
  1. WARFARIN SODIUM [Suspect]
     Dosage: DOSE INCREASED TO 9MG SINCE 3WKS
  2. METFORMIN HCL [Concomitant]
  3. POTASSIUM [Concomitant]
  4. ATENOLOL [Concomitant]
  5. VITAMIN D [Concomitant]
  6. SIMVASTATIN [Concomitant]
  7. FUROSEMIDE [Concomitant]
  8. LOSARTAN POTASSIUM [Concomitant]
  9. CALCIUM [Concomitant]

REACTIONS (3)
  - MUSCULOSKELETAL CHEST PAIN [None]
  - DEHYDRATION [None]
  - BRONCHITIS [None]
